FAERS Safety Report 23341705 (Version 2)
Quarter: 2024Q1

REPORT INFORMATION
  Report Type: Spontaneous
  Country: CH (occurrence: CH)
  Receive Date: 20231227
  Receipt Date: 20240113
  Transmission Date: 20240410
  Serious: Yes (Hospitalization, Other)
  Sender: FDA-Public Use
  Company Number: CH-SCIEGENP-2023SCLIT00818

PATIENT
  Sex: Female

DRUGS (3)
  1. QUETIAPINE [Suspect]
     Active Substance: QUETIAPINE
     Indication: Product used for unknown indication
     Route: 048
  2. LEVOMEPROMAZINE [Suspect]
     Active Substance: LEVOMEPROMAZINE
     Indication: Product used for unknown indication
     Route: 048
  3. TAXUS BACCATA FRUIT. [Suspect]
     Active Substance: HERBALS\HOMEOPATHICS\TAXUS BACCATA FRUIT
     Indication: Product used for unknown indication
     Dosage: 100 LEAVES, 2.5 HANDFUL
     Route: 048

REACTIONS (2)
  - Poisoning deliberate [Unknown]
  - Electrocardiogram QT prolonged [Unknown]
